FAERS Safety Report 7523589-2 (Version None)
Quarter: 2011Q2

REPORT INFORMATION
  Report Type: 
  Country: None (occurrence: None)
  Receive Date: 20110603
  Receipt Date: 20110510
  Transmission Date: 20111010
  Serious: Yes (Other)
  Sender: FDA-Public Use
  Company Number: US-ELI_LILLY_AND_COMPANY-US201105004060

PATIENT
  Sex: Female

DRUGS (5)
  1. NEXIUM [Concomitant]
     Dosage: 40 MG, BID
  2. HYDROCORTISONE [Concomitant]
     Indication: HAEMORRHOIDS
  3. FORTEO [Suspect]
     Indication: OSTEOPOROSIS
     Dosage: 20 UG, UNK
     Dates: start: 20091201
  4. METOPROLOL TARTRATE [Concomitant]
     Dosage: 25 MG, UNK
  5. SIMVASTATIN [Concomitant]
     Dosage: 25 MG, DAILY (1/D)

REACTIONS (9)
  - GLAUCOMA [None]
  - DRUG DOSE OMISSION [None]
  - THYROID DISORDER [None]
  - BLINDNESS [None]
  - HERPES OPHTHALMIC [None]
  - CORNEAL INFECTION [None]
  - EYE INFECTION INTRAOCULAR [None]
  - INTRAOCULAR PRESSURE INCREASED [None]
  - HERPES ZOSTER [None]
